FAERS Safety Report 8017875-X (Version None)
Quarter: 2012Q1

REPORT INFORMATION
  Report Type: 
  Country: None (occurrence: None)
  Receive Date: 20120103
  Receipt Date: 20111228
  Transmission Date: 20120608
  Serious: No
  Sender: FDA-Public Use
  Company Number: US-PFIZER INC-2011315597

PATIENT
  Sex: Female
  Weight: 33.56 kg

DRUGS (4)
  1. CHILDREN'S ADVIL [Suspect]
     Indication: VIRAL INFECTION
     Dosage: UNK, DAILY
     Dates: start: 20111228
  2. STRATTERA [Concomitant]
     Indication: ANXIETY DISORDER
     Dosage: 40 MG, DAILY
  3. STRATTERA [Concomitant]
     Indication: ATTENTION DEFICIT/HYPERACTIVITY DISORDER
  4. LORATADINE [Concomitant]
     Dosage: 10 MG, DAILY

REACTIONS (1)
  - RASH PRURITIC [None]
